FAERS Safety Report 18725079 (Version 1)
Quarter: 2021Q1

REPORT INFORMATION
  Report Type: Spontaneous
  Country: US (occurrence: US)
  Receive Date: 20210111
  Receipt Date: 20210111
  Transmission Date: 20210419
  Serious: No
  Sender: FDA-Public Use
  Company Number: None

PATIENT
  Age: 29 Year
  Sex: Female

DRUGS (1)
  1. NALTREXONE [Suspect]
     Active Substance: NALTREXONE
     Dosage: ?          OTHER FREQUENCY:MONTHLY;?
     Route: 030

REACTIONS (2)
  - Night sweats [None]
  - Nausea [None]

NARRATIVE: CASE EVENT DATE: 20201217
